FAERS Safety Report 4833139-7 (Version None)
Quarter: 2005Q4

REPORT INFORMATION
  Report Type: 
  Country: None (occurrence: None)
  Receive Date: 20051117
  Receipt Date: 20051104
  Transmission Date: 20060501
  Serious: Yes (Hospitalization)
  Sender: FDA-Public Use
  Company Number: 2005151205

PATIENT
  Age: 53 Year
  Sex: Male
  Weight: 148.7798 kg

DRUGS (12)
  1. DETROL LA [Suspect]
     Indication: INCONTINENCE
     Dosage: 4 MG (4 MG, 1 IN 1 D), ORAL
     Route: 048
     Dates: start: 20050701, end: 20050827
  2. DRUG USED IN DIABETES (DRUG USED IN DIABETES) [Suspect]
     Indication: DIABETES MELLITUS NON-INSULIN-DEPENDENT
     Dosage: 10 MCG (5 MCG, 2 IN 1 D), SUBCUTANEOUS
     Route: 058
     Dates: start: 20050826
  3. HUMULIN 70/30 [Concomitant]
  4. AVANDIA [Concomitant]
  5. CAPTOPRIL [Concomitant]
  6. NIFEDIPINE [Concomitant]
  7. VYTORIN [Concomitant]
  8. PREVACID [Concomitant]
  9. ASPIRIN [Concomitant]
  10. CALCIUM (CALCIUM) [Concomitant]
  11. CENTRUM (MINERALS NOS, VITAMINS NOS) [Concomitant]
  12. AMPICILLIN [Concomitant]

REACTIONS (5)
  - BLOOD GLUCOSE INCREASED [None]
  - CHEST PAIN [None]
  - DIZZINESS [None]
  - NAUSEA [None]
  - PAIN IN EXTREMITY [None]
